FAERS Safety Report 22152404 (Version 1)
Quarter: 2023Q1

REPORT INFORMATION
  Report Type: Report from Study
  Country: CN (occurrence: CN)
  Receive Date: 20230329
  Receipt Date: 20230329
  Transmission Date: 20230418
  Serious: Yes (Hospitalization)
  Sender: FDA-Public Use
  Company Number: CN-BIOGEN-2023BI01195986

PATIENT
  Age: 14 Year
  Sex: Female
  Weight: 27 kg

DRUGS (7)
  1. SPINRAZA [Suspect]
     Active Substance: NUSINERSEN
     Indication: Spinal muscular atrophy
     Dosage: 1ST INJECTION
     Route: 050
     Dates: start: 20220110
  2. SPINRAZA [Suspect]
     Active Substance: NUSINERSEN
     Dosage: 2ND DOSE
     Route: 050
     Dates: start: 20220124
  3. SPINRAZA [Suspect]
     Active Substance: NUSINERSEN
     Dosage: 3RD DOSE
     Route: 050
     Dates: start: 20220208
  4. SPINRAZA [Suspect]
     Active Substance: NUSINERSEN
     Dosage: 4TH DOSE
     Route: 050
     Dates: start: 20220318
  5. SPINRAZA [Suspect]
     Active Substance: NUSINERSEN
     Dosage: 5TH DOSE
     Route: 050
     Dates: start: 20220713
  6. SPINRAZA [Suspect]
     Active Substance: NUSINERSEN
     Dosage: 6TH DOSE
     Route: 050
     Dates: start: 20221115
  7. SPINRAZA [Suspect]
     Active Substance: NUSINERSEN
     Dosage: 7TH DOSE
     Route: 050
     Dates: start: 20230314

REACTIONS (2)
  - Gastroenteritis [Recovered/Resolved]
  - Gastrooesophageal reflux disease [Not Recovered/Not Resolved]

NARRATIVE: CASE EVENT DATE: 20230201
